FAERS Safety Report 6309612-1 (Version None)
Quarter: 2009Q3

REPORT INFORMATION
  Report Type: 
  Country: None (occurrence: None)
  Receive Date: 20090814
  Receipt Date: 20090803
  Transmission Date: 20100115
  Serious: Yes (Hospitalization)
  Sender: FDA-Public Use
  Company Number: US-JNJFOC-20090801050

PATIENT
  Sex: Female
  Weight: 69 kg

DRUGS (5)
  1. TRAMADOL [Suspect]
     Indication: BACK PAIN
     Route: 065
  2. REBIF [Suspect]
     Indication: MULTIPLE SCLEROSIS
     Route: 058
  3. HYDROCODONE [Suspect]
     Indication: BACK PAIN
     Route: 065
  4. ASTHMA NEBULIZER NOS [Concomitant]
     Indication: ASTHMA
  5. NEXIUM [Concomitant]
     Indication: GASTRIC DISORDER

REACTIONS (6)
  - CRYING [None]
  - DECREASED APPETITE [None]
  - DISORIENTATION [None]
  - FALL [None]
  - MULTIPLE SCLEROSIS [None]
  - PRESYNCOPE [None]
